FAERS Safety Report 9869041 (Version 1)
Quarter: 2014Q1

REPORT INFORMATION
  Report Type: Report from Study
  Country: US (occurrence: US)
  Receive Date: 20140205
  Receipt Date: 20140205
  Transmission Date: 20141002
  Serious: Yes (Hospitalization)
  Sender: FDA-Public Use
  Company Number: US-ROCHE-1343807

PATIENT
  Age: 55 Year
  Sex: Male
  Weight: 72.4 kg

DRUGS (3)
  1. BEVACIZUMAB [Suspect]
     Indication: GLIOBLASTOMA
     Dosage: DOSE:10 MG/KG
     Route: 042
     Dates: start: 20130516, end: 20140117
  2. TEMOZOLOMIDE [Suspect]
     Indication: GLIOBLASTOMA
     Dosage: DOSE: 200 MG/M2X5 DAYS EVERY 28 DAYS
     Route: 048
     Dates: start: 20130711, end: 20140121
  3. ZOFRAN [Concomitant]
     Route: 065

REACTIONS (1)
  - Convulsion [Recovered/Resolved]
